FAERS Safety Report 7348166-8 (Version None)
Quarter: 2011Q1

REPORT INFORMATION
  Report Type: 
  Country: None (occurrence: None)
  Receive Date: 20110311
  Receipt Date: 20110302
  Transmission Date: 20110831
  Serious: Yes (Hospitalization)
  Sender: FDA-Public Use
  Company Number: DE-JNJFOC-20110207118

PATIENT
  Sex: Female
  Weight: 52.4 kg

DRUGS (10)
  1. PREDNISOLONE [Concomitant]
     Route: 048
  2. BONDIOL [Concomitant]
     Route: 048
  3. GOLIMUMAB [Suspect]
     Indication: RHEUMATOID ARTHRITIS
     Route: 058
  4. GOLIMUMAB [Suspect]
     Route: 058
  5. ACTONEL [Concomitant]
     Route: 048
  6. METHOTREXATE [Suspect]
     Indication: RHEUMATOID ARTHRITIS
     Route: 048
  7. METHOTREXATE [Concomitant]
     Route: 065
  8. FOLSAN [Concomitant]
     Route: 048
  9. IBUPROFEN [Concomitant]
     Route: 048
  10. CALCIUM [Concomitant]
     Route: 048

REACTIONS (1)
  - THYROID NEOPLASM [None]
